FAERS Safety Report 11376574 (Version 4)
Quarter: 2015Q4

REPORT INFORMATION
  Report Type: Spontaneous
  Country: US (occurrence: US)
  Receive Date: 20150813
  Receipt Date: 20151120
  Transmission Date: 20160304
  Serious: Yes (Other)
  Sender: FDA-Public Use
  Company Number: US-PFIZER INC-2015267322

PATIENT
  Age: 64 Year
  Sex: Male

DRUGS (2)
  1. LYRICA [Suspect]
     Active Substance: PREGABALIN
     Indication: SPINAL CORD INJURY
     Dosage: 150 MG, 3X/DAY
     Dates: start: 200601
  2. TRAMADOL. [Concomitant]
     Active Substance: TRAMADOL
     Dosage: 400 MG, DAILY
     Dates: start: 200601

REACTIONS (3)
  - Pain [Recovered/Resolved]
  - Drug withdrawal syndrome [Recovered/Resolved]
  - Depression suicidal [Recovered/Resolved]
